FAERS Safety Report 21253967 (Version 1)
Quarter: 2022Q3

REPORT INFORMATION
  Report Type: Spontaneous
  Country: US (occurrence: None)
  Receive Date: 20220824
  Receipt Date: 20220824
  Transmission Date: 20221026
  Serious: Yes (Death)
  Sender: FDA-Public Use
  Company Number: None

PATIENT
  Age: 69 Year
  Sex: Male

DRUGS (15)
  1. ERLEADA [Suspect]
     Active Substance: APALUTAMIDE
     Indication: Prostate cancer
     Dosage: FREQUENCY : DAILY;?
     Route: 048
     Dates: start: 20220219, end: 20220813
  2. ALLOPURINOL [Concomitant]
     Active Substance: ALLOPURINOL
  3. ATORVASTATIN [Concomitant]
     Active Substance: ATORVASTATIN
  4. BICALUTAMIDE [Concomitant]
     Active Substance: BICALUTAMIDE
  5. CEPHALEXIN [Concomitant]
     Active Substance: CEPHALEXIN
  6. ELIQUIS [Concomitant]
     Active Substance: APIXABAN
  7. FARXIGA TABLETS [Concomitant]
  8. FINASTERIDE [Concomitant]
     Active Substance: FINASTERIDE
  9. FUROSEMIDE [Concomitant]
     Active Substance: FUROSEMIDE
  10. LIDEX CREAM [Concomitant]
  11. METHENAMINE HIPPURATE TABLETS [Concomitant]
  12. METOPROLOL ER SUCCINATE TABS [Concomitant]
  13. MIDODRINE TABLETS [Concomitant]
  14. MULTVITAMIN TABLETS [Concomitant]
  15. OXYBUTYNIN [Concomitant]
     Active Substance: OXYBUTYNIN

REACTIONS (1)
  - Unresponsive to stimuli [None]

NARRATIVE: CASE EVENT DATE: 20220814
